FAERS Safety Report 13921835 (Version 5)
Quarter: 2017Q4

REPORT INFORMATION
  Report Type: Spontaneous
  Country: US (occurrence: US)
  Receive Date: 20170830
  Receipt Date: 20171222
  Transmission Date: 20180320
  Serious: Yes (Hospitalization, Other)
  Sender: FDA-Public Use
  Company Number: US-ACTELION-A-US2017-158645

PATIENT
  Age: 52 Year
  Sex: Male
  Weight: 55.33 kg

DRUGS (3)
  1. UPTRAVI [Suspect]
     Active Substance: SELEXIPAG
     Indication: PULMONARY ARTERIAL HYPERTENSION
     Dosage: 1600 MCG, BID
     Route: 048
  2. ADEMPAS [Concomitant]
     Active Substance: RIOCIGUAT
  3. LETAIRIS [Concomitant]
     Active Substance: AMBRISENTAN

REACTIONS (19)
  - Nausea [Unknown]
  - Fatigue [Unknown]
  - Dyspnoea at rest [Unknown]
  - Large intestinal polypectomy [Unknown]
  - Pancreatitis [Unknown]
  - Vomiting [Unknown]
  - Myocardial necrosis marker increased [Unknown]
  - Condition aggravated [Unknown]
  - Dyspnoea [Unknown]
  - Chest pain [Unknown]
  - Diarrhoea [Unknown]
  - Dyspnoea exertional [Unknown]
  - Weight decreased [Unknown]
  - Headache [Unknown]
  - Swelling face [Unknown]
  - Feeling abnormal [Unknown]
  - Blood sodium decreased [Unknown]
  - Abdominal pain upper [Unknown]
  - Abdominal discomfort [Unknown]
